FAERS Safety Report 11867534 (Version 1)
Quarter: 2015Q4

REPORT INFORMATION
  Report Type: Spontaneous
  Country: US (occurrence: US)
  Receive Date: 20151224
  Receipt Date: 20151224
  Transmission Date: 20160305
  Serious: No
  Sender: FDA-Public Use
  Company Number: US-GLAXOSMITHKLINE-US2015GSK175883

PATIENT
  Sex: Female

DRUGS (2)
  1. CARVEDILOL TABLET [Suspect]
     Active Substance: CARVEDILOL
     Indication: BLOOD PRESSURE ABNORMAL
     Dosage: UNK
     Dates: start: 20151202
  2. CARVEDILOL TABLET [Suspect]
     Active Substance: CARVEDILOL
     Indication: CARDIAC DISORDER

REACTIONS (5)
  - Mood altered [Unknown]
  - Vomiting [Unknown]
  - Malaise [Unknown]
  - Somnolence [Unknown]
  - Product substitution issue [Unknown]
